FAERS Safety Report 15755100 (Version 1)
Quarter: 2018Q4

REPORT INFORMATION
  Report Type: Report from Study
  Country: US (occurrence: US)
  Receive Date: 20181224
  Receipt Date: 20181224
  Transmission Date: 20190205
  Serious: Yes (Hospitalization, Other)
  Sender: FDA-Public Use
  Company Number: US-AUROBINDO-AUR-APL-2018-060925

PATIENT
  Age: 35 Year
  Sex: Male
  Weight: 62 kg

DRUGS (8)
  1. GABAPENTIN. [Concomitant]
     Active Substance: GABAPENTIN
     Indication: PRODUCT USED FOR UNKNOWN INDICATION
     Dosage: 800 MILLIGRAM, 3 TIMES A DAY
     Route: 065
  2. OXYCODONE [Suspect]
     Active Substance: OXYCODONE
     Dosage: INCREASED TO 479 MME DAILY
     Route: 065
  3. KETAMINE [Suspect]
     Active Substance: KETAMINE
     Indication: PAIN
     Dosage: 1 MICROGRAM/KILOGRAM PER MIN
     Route: 065
  4. AMITRIPTYLINE [Concomitant]
     Active Substance: AMITRIPTYLINE
     Indication: PRODUCT USED FOR UNKNOWN INDICATION
     Dosage: 25 MG AT BEDTIME
     Route: 065
  5. OXYCODONE [Suspect]
     Active Substance: OXYCODONE
     Indication: PAIN
     Dosage: 240 MG OF MORPHINE EQUIVALENTS (MML) DAILY WITH UP O 60 MME AS REQUIRED
     Route: 065
  6. OXYCODONE [Suspect]
     Active Substance: OXYCODONE
     Dosage: DECREASED TO 388 MME DAILY
     Route: 065
  7. ACETAMINOPHEN. [Concomitant]
     Active Substance: ACETAMINOPHEN
     Indication: PRODUCT USED FOR UNKNOWN INDICATION
     Dosage: 1000 MILLIGRAM EVERY 6 HOURS
     Route: 065
  8. KETAMINE [Suspect]
     Active Substance: KETAMINE
     Dosage: MAXIMUM INFUSION RATE: 3.5 PG/KG/MIN
     Route: 065

REACTIONS (1)
  - Hyperaesthesia [Unknown]
